FAERS Safety Report 4320215-0 (Version None)
Quarter: 2004Q1

REPORT INFORMATION
  Report Type: 
  Country: None (occurrence: None)
  Receive Date: 20040317
  Receipt Date: 20040303
  Transmission Date: 20041129
  Serious: Yes (Death)
  Sender: FDA-Public Use
  Company Number: ZANA001134

PATIENT

DRUGS (5)
  1. ZANAFLEX [Suspect]
     Indication: PARKINSON'S DISEASE
     Dosage: 4 MG DAILY ORAL
     Route: 048
     Dates: start: 20040130, end: 20040219
  2. HYPROMELLOSE (HYPROMELLOSE) [Concomitant]
  3. PERINDOPRIL (PERINDOPRIL) [Concomitant]
  4. ACETAMINOPHEN [Concomitant]
  5. LACTULOSE [Concomitant]

REACTIONS (1)
  - BRONCHOPNEUMONIA [None]
